FAERS Safety Report 9100471 (Version 1)
Quarter: 2013Q1

REPORT INFORMATION
  Report Type: Spontaneous
  Country: FR (occurrence: FR)
  Receive Date: 20130215
  Receipt Date: 20130215
  Transmission Date: 20140127
  Serious: Yes (Hospitalization)
  Sender: FDA-Public Use
  Company Number: FR-PFIZER INC-2013058914

PATIENT
  Age: 91 Year
  Sex: Female

DRUGS (5)
  1. CORDARONE [Suspect]
     Dosage: 200 MG DAILY
     Route: 048
     Dates: end: 201212
  2. FUROSEMIDE [Suspect]
     Dosage: 20 MG TWICE DAILY
     Route: 048
     Dates: start: 2005, end: 20121120
  3. LORAZEPAM [Suspect]
     Dosage: 2.5 MG, DAILY
     Route: 048
     Dates: start: 200808, end: 20120608
  4. FERROUS SULPHATE [Suspect]
     Dosage: 80 MG, DAILY
     Route: 048
     Dates: start: 201010, end: 201207
  5. GLICLAZIDE [Suspect]
     Dosage: 80 MILLIGRAM(S);TWICE A DAY
     Route: 048
     Dates: start: 2005, end: 201207

REACTIONS (1)
  - Toxic skin eruption [Recovering/Resolving]
